FAERS Safety Report 21452789 (Version 6)
Quarter: 2023Q2

REPORT INFORMATION
  Report Type: Report from Study
  Country: DE (occurrence: None)
  Receive Date: 20221013
  Receipt Date: 20230609
  Transmission Date: 20230721
  Serious: Yes (Hospitalization)
  Sender: FDA-Public Use
  Company Number: DE-ROCHE-3197260

PATIENT
  Age: 43 Year
  Sex: Female
  Weight: 77 kg

DRUGS (15)
  1. ATEZOLIZUMAB [Suspect]
     Active Substance: ATEZOLIZUMAB
     Indication: Triple negative breast cancer
     Dosage: DATE OF LAST DOSE OF ATEZOLIZUMAB PRIOR TO SAE: 14/JUL/2022, 25/AUG/2022
     Route: 041
     Dates: start: 20220519
  2. PACLITAXEL [Suspect]
     Active Substance: PACLITAXEL
     Indication: Triple negative breast cancer
     Dosage: DATE OF LAST DOSE OF PACLITAXEL PRIOR TO SAE: 28/JUL/2022, 18/AUG/2022
     Route: 042
     Dates: start: 20220602
  3. CARBOPLATIN [Suspect]
     Active Substance: CARBOPLATIN
     Indication: Triple negative breast cancer
     Dosage: DATE OF LAST DOSE OF CARBOPLATIN PRIOR TO SAE: 28/JUL/2022, 18/AUG/2022
     Route: 042
     Dates: start: 20220602
  4. EPIRUBICIN [Suspect]
     Active Substance: EPIRUBICIN
     Indication: Triple negative breast cancer
     Dosage: DATE OF LAST DOSE OF EPIRUBICIN PRIOR TO SAE: 25/AUG/2022
     Route: 042
     Dates: start: 20220825
  5. CYCLOPHOSPHAMIDE [Suspect]
     Active Substance: CYCLOPHOSPHAMIDE
     Indication: Triple negative breast cancer
     Dosage: DATE OF LAST DOSE OF CYCLOPHOSPHAMID PRIOR TO SAE: 25/AUG/2022
     Route: 042
     Dates: start: 20220825
  6. PREDNISOLONE [Concomitant]
     Active Substance: PREDNISOLONE
     Dates: start: 20220617, end: 202206
  7. DEXAMETHASONDIHYDROGENPHOSPHAT-DINATRIUM [Concomitant]
     Dates: start: 20220602, end: 20221027
  8. DEXAMETHASONDIHYDROGENPHOSPHAT-DINATRIUM [Concomitant]
     Dates: start: 20220603, end: 20221028
  9. DEXAMETHASONDIHYDROGENPHOSPHAT-DINATRIUM [Concomitant]
     Dates: start: 20220604, end: 20221029
  10. ONDANSETRON [Concomitant]
     Active Substance: ONDANSETRON
     Dates: start: 20220602, end: 20220623
  11. GRANISETRON [Concomitant]
     Active Substance: GRANISETRON
     Dates: start: 20220714, end: 20221027
  12. DIMETHINDENE MALEATE [Concomitant]
     Active Substance: DIMETHINDENE MALEATE
     Dates: start: 20220602, end: 20220818
  13. FOSAPREPITANT [Concomitant]
     Active Substance: FOSAPREPITANT
     Dates: start: 20220825, end: 20221027
  14. MESNA [Concomitant]
     Active Substance: MESNA
     Dates: start: 20220825, end: 20221027
  15. SODIUM CHLORIDE [Concomitant]
     Active Substance: SODIUM CHLORIDE
     Dates: start: 20220825, end: 20221027

REACTIONS (1)
  - Febrile neutropenia [Recovered/Resolved]

NARRATIVE: CASE EVENT DATE: 20220903
